FAERS Safety Report 10691409 (Version 2)
Quarter: 2015Q1

REPORT INFORMATION
  Report Type: Report from Study
  Country: US (occurrence: US)
  Receive Date: 20150105
  Receipt Date: 20150112
  Transmission Date: 20150720
  Serious: Yes (Death)
  Sender: FDA-Public Use
  Company Number: US-PURDUE PHARMA-USA-2014-0120030

PATIENT
  Age: 57 Year
  Sex: Male

DRUGS (3)
  1. OXYCONTIN [Suspect]
     Active Substance: OXYCODONE HYDROCHLORIDE
     Indication: NEURALGIA
     Dosage: 20 MG, Q8H
     Route: 048
     Dates: start: 20141024
  2. OXYCONTIN [Suspect]
     Active Substance: OXYCODONE HYDROCHLORIDE
     Indication: BACK PAIN
     Dosage: UNK
     Route: 048
     Dates: start: 201302
  3. OXYCONTIN [Suspect]
     Active Substance: OXYCODONE HYDROCHLORIDE
     Indication: SPINAL COLUMN STENOSIS
     Dosage: 80 MG, Q8H
     Route: 048
     Dates: start: 20141024

REACTIONS (1)
  - Gun shot wound [Fatal]

NARRATIVE: CASE EVENT DATE: 20141125
